FAERS Safety Report 23339212 (Version 3)
Quarter: 2024Q1

REPORT INFORMATION
  Report Type: Spontaneous
  Country: CZ (occurrence: CZ)
  Receive Date: 20231226
  Receipt Date: 20240216
  Transmission Date: 20240410
  Serious: Yes (Life-Threatening)
  Sender: FDA-Public Use
  Company Number: CZ-TAKEDA-2023TUS121300

PATIENT
  Age: 67 Year
  Sex: Female

DRUGS (2)
  1. DEXAMETHASONE [Suspect]
     Active Substance: DEXAMETHASONE
     Indication: Plasma cell myeloma
     Dosage: SECOND LINE OF THE STUDY TREATMENT WITH KD
     Route: 065
     Dates: start: 201801, end: 2019
  2. CARFILZOMIB [Suspect]
     Active Substance: CARFILZOMIB
     Indication: Plasma cell myeloma
     Dosage: SECOND LINE OF THE STUDY TREATMENT WITH KD
     Route: 065
     Dates: start: 201801, end: 2019

REACTIONS (1)
  - Therapy non-responder [Unknown]

NARRATIVE: CASE EVENT DATE: 20180101
